FAERS Safety Report 20167947 (Version 1)
Quarter: 2021Q4

REPORT INFORMATION
  Report Type: Spontaneous
  Country: JP (occurrence: JP)
  Receive Date: 20211210
  Receipt Date: 20211210
  Transmission Date: 20220303
  Serious: Yes (Hospitalization, Other)
  Sender: FDA-Public Use
  Company Number: JP-SUN PHARMACEUTICAL INDUSTRIES LTD-2021RR-319741

PATIENT
  Age: 15 Year
  Sex: Male

DRUGS (7)
  1. OCTREOTIDE [Suspect]
     Active Substance: OCTREOTIDE
     Indication: Protein-losing gastroenteropathy
     Dosage: 100 MICROGRAM, DAILY
     Route: 058
  2. OCTREOTIDE [Suspect]
     Active Substance: OCTREOTIDE
     Dosage: 200 MICROGRAM, DAILY
     Route: 058
  3. PREDNISOLONE [Suspect]
     Active Substance: PREDNISOLONE
     Indication: Protein-losing gastroenteropathy
     Dosage: 60 MILLIGRAM, DAILY
     Route: 065
  4. PREDNISOLONE [Suspect]
     Active Substance: PREDNISOLONE
     Dosage: 5 MILLIGRAM, DAILY
     Route: 065
  5. UNSPECIFIED INGREDIENT [Concomitant]
     Active Substance: UNSPECIFIED INGREDIENT
     Indication: Anticoagulant therapy
     Dosage: UNK
     Route: 065
  6. DIPYRIDAMOLE [Concomitant]
     Active Substance: DIPYRIDAMOLE
     Indication: Anticoagulant therapy
     Dosage: 200 MILLIGRAM, DAILY
     Route: 065
  7. SANDOSTATIN LAR DEPOT [Concomitant]
     Active Substance: OCTREOTIDE ACETATE
     Indication: Protein-losing gastroenteropathy
     Dosage: 20 MILLIGRAM/TIME, ONCE A MONTH
     Route: 030

REACTIONS (2)
  - Drug ineffective [Unknown]
  - Off label use [Unknown]
